FAERS Safety Report 6699588-X (Version None)
Quarter: 2010Q2

REPORT INFORMATION
  Report Type: 
  Country: None (occurrence: None)
  Receive Date: 20100428
  Receipt Date: 20100418
  Transmission Date: 20101027
  Serious: Yes (Hospitalization)
  Sender: FDA-Public Use
  Company Number: IL-BIOGENIDEC-2010BI012335

PATIENT
  Age: 33 Year
  Sex: Female

DRUGS (5)
  1. TYSABRI [Suspect]
     Indication: PROGRESSIVE RELAPSING MULTIPLE SCLEROSIS
     Route: 042
     Dates: start: 20090901, end: 20100301
  2. EFFEXOR [Concomitant]
     Route: 048
     Dates: start: 20050101
  3. NEURONTIN [Concomitant]
     Route: 048
     Dates: start: 20000101
  4. OXYCONTIN [Concomitant]
     Route: 048
  5. BONDORMIN [Concomitant]
     Route: 048
     Dates: start: 20080101

REACTIONS (1)
  - HEPATITIS ACUTE [None]
